FAERS Safety Report 25067974 (Version 2)
Quarter: 2025Q2

REPORT INFORMATION
  Report Type: Spontaneous
  Country: DE (occurrence: DE)
  Receive Date: 20250312
  Receipt Date: 20250519
  Transmission Date: 20250717
  Serious: Yes (Other)
  Sender: MYLAN
  Company Number: DE-MYLANLABS-2025M1018512

PATIENT
  Age: 8 Year
  Sex: Male

DRUGS (76)
  1. VALPROIC ACID [Suspect]
     Active Substance: VALPROIC ACID
     Indication: Partial seizures
  2. VALPROIC ACID [Suspect]
     Active Substance: VALPROIC ACID
     Indication: Rasmussen encephalitis
     Route: 065
  3. VALPROIC ACID [Suspect]
     Active Substance: VALPROIC ACID
     Route: 065
  4. VALPROIC ACID [Suspect]
     Active Substance: VALPROIC ACID
  5. LEVETIRACETAM [Suspect]
     Active Substance: LEVETIRACETAM
     Indication: Partial seizures
  6. LEVETIRACETAM [Suspect]
     Active Substance: LEVETIRACETAM
     Indication: Rasmussen encephalitis
     Route: 065
  7. LEVETIRACETAM [Suspect]
     Active Substance: LEVETIRACETAM
     Route: 065
  8. LEVETIRACETAM [Suspect]
     Active Substance: LEVETIRACETAM
  9. OXCARBAZEPINE [Suspect]
     Active Substance: OXCARBAZEPINE
     Indication: Partial seizures
     Route: 065
  10. OXCARBAZEPINE [Suspect]
     Active Substance: OXCARBAZEPINE
     Indication: Rasmussen encephalitis
  11. OXCARBAZEPINE [Suspect]
     Active Substance: OXCARBAZEPINE
  12. OXCARBAZEPINE [Suspect]
     Active Substance: OXCARBAZEPINE
     Route: 065
  13. OXCARBAZEPINE [Suspect]
     Active Substance: OXCARBAZEPINE
     Dosage: 1200 MILLIGRAM, QD
     Route: 065
  14. OXCARBAZEPINE [Suspect]
     Active Substance: OXCARBAZEPINE
     Dosage: 1200 MILLIGRAM, QD
  15. OXCARBAZEPINE [Suspect]
     Active Substance: OXCARBAZEPINE
     Dosage: 1200 MILLIGRAM, QD
  16. OXCARBAZEPINE [Suspect]
     Active Substance: OXCARBAZEPINE
     Dosage: 1200 MILLIGRAM, QD
     Route: 065
  17. LAMOTRIGINE [Suspect]
     Active Substance: LAMOTRIGINE
     Indication: Partial seizures
  18. LAMOTRIGINE [Suspect]
     Active Substance: LAMOTRIGINE
     Indication: Rasmussen encephalitis
     Route: 065
  19. LAMOTRIGINE [Suspect]
     Active Substance: LAMOTRIGINE
     Route: 065
  20. LAMOTRIGINE [Suspect]
     Active Substance: LAMOTRIGINE
  21. LACOSAMIDE [Suspect]
     Active Substance: LACOSAMIDE
     Indication: Partial seizures
  22. LACOSAMIDE [Suspect]
     Active Substance: LACOSAMIDE
     Indication: Rasmussen encephalitis
     Route: 065
  23. LACOSAMIDE [Suspect]
     Active Substance: LACOSAMIDE
     Route: 065
  24. LACOSAMIDE [Suspect]
     Active Substance: LACOSAMIDE
  25. CARBAMAZEPINE [Suspect]
     Active Substance: CARBAMAZEPINE
     Indication: Partial seizures
  26. CARBAMAZEPINE [Suspect]
     Active Substance: CARBAMAZEPINE
     Indication: Rasmussen encephalitis
     Route: 065
  27. CARBAMAZEPINE [Suspect]
     Active Substance: CARBAMAZEPINE
     Route: 065
  28. CARBAMAZEPINE [Suspect]
     Active Substance: CARBAMAZEPINE
  29. TOPIRAMATE [Suspect]
     Active Substance: TOPIRAMATE
     Indication: Partial seizures
  30. TOPIRAMATE [Suspect]
     Active Substance: TOPIRAMATE
     Indication: Rasmussen encephalitis
     Route: 065
  31. TOPIRAMATE [Suspect]
     Active Substance: TOPIRAMATE
     Route: 065
  32. TOPIRAMATE [Suspect]
     Active Substance: TOPIRAMATE
  33. ZONISAMIDE [Suspect]
     Active Substance: ZONISAMIDE
     Indication: Partial seizures
  34. ZONISAMIDE [Suspect]
     Active Substance: ZONISAMIDE
     Indication: Rasmussen encephalitis
     Route: 065
  35. ZONISAMIDE [Suspect]
     Active Substance: ZONISAMIDE
     Route: 065
  36. ZONISAMIDE [Suspect]
     Active Substance: ZONISAMIDE
  37. TACROLIMUS [Suspect]
     Active Substance: TACROLIMUS
     Indication: Partial seizures
  38. TACROLIMUS [Suspect]
     Active Substance: TACROLIMUS
     Indication: Rasmussen encephalitis
     Route: 065
  39. TACROLIMUS [Suspect]
     Active Substance: TACROLIMUS
     Route: 065
  40. TACROLIMUS [Suspect]
     Active Substance: TACROLIMUS
  41. PHENYTOIN [Suspect]
     Active Substance: PHENYTOIN
     Indication: Partial seizures
  42. PHENYTOIN [Suspect]
     Active Substance: PHENYTOIN
     Indication: Rasmussen encephalitis
     Route: 065
  43. PHENYTOIN [Suspect]
     Active Substance: PHENYTOIN
     Route: 065
  44. PHENYTOIN [Suspect]
     Active Substance: PHENYTOIN
  45. AMOBARBITAL [Suspect]
     Active Substance: AMOBARBITAL
     Indication: Wada test
  46. AMOBARBITAL [Suspect]
     Active Substance: AMOBARBITAL
     Route: 065
  47. AMOBARBITAL [Suspect]
     Active Substance: AMOBARBITAL
     Route: 065
  48. AMOBARBITAL [Suspect]
     Active Substance: AMOBARBITAL
  49. PHENOBARBITAL [Suspect]
     Active Substance: PHENOBARBITAL
     Indication: Partial seizures
     Dosage: 225 MILLIGRAM, QD (DOSE CONTINUED AT 225MG/DAY)
  50. PHENOBARBITAL [Suspect]
     Active Substance: PHENOBARBITAL
     Indication: Rasmussen encephalitis
     Dosage: 225 MILLIGRAM, QD (DOSE CONTINUED AT 225MG/DAY)
  51. PHENOBARBITAL [Suspect]
     Active Substance: PHENOBARBITAL
     Dosage: 225 MILLIGRAM, QD (DOSE CONTINUED AT 225MG/DAY)
     Route: 065
  52. PHENOBARBITAL [Suspect]
     Active Substance: PHENOBARBITAL
     Dosage: 225 MILLIGRAM, QD (DOSE CONTINUED AT 225MG/DAY)
     Route: 065
  53. PHENOBARBITAL [Suspect]
     Active Substance: PHENOBARBITAL
     Dosage: 200 MILLIGRAM, QD (FURTHER REDUCED AT 200MG/DAY)
     Route: 065
  54. PHENOBARBITAL [Suspect]
     Active Substance: PHENOBARBITAL
     Dosage: 200 MILLIGRAM, QD (FURTHER REDUCED AT 200MG/DAY)
     Route: 065
  55. PHENOBARBITAL [Suspect]
     Active Substance: PHENOBARBITAL
     Dosage: 200 MILLIGRAM, QD (FURTHER REDUCED AT 200MG/DAY)
  56. PHENOBARBITAL [Suspect]
     Active Substance: PHENOBARBITAL
     Dosage: 200 MILLIGRAM, QD (FURTHER REDUCED AT 200MG/DAY)
  57. PHENOBARBITAL [Suspect]
     Active Substance: PHENOBARBITAL
     Dosage: 75 MILLIGRAM, QD (THEN REDUCED TO 75MG/DAY)
     Route: 065
  58. PHENOBARBITAL [Suspect]
     Active Substance: PHENOBARBITAL
     Dosage: 75 MILLIGRAM, QD (THEN REDUCED TO 75MG/DAY)
  59. PHENOBARBITAL [Suspect]
     Active Substance: PHENOBARBITAL
     Dosage: 75 MILLIGRAM, QD (THEN REDUCED TO 75MG/DAY)
  60. PHENOBARBITAL [Suspect]
     Active Substance: PHENOBARBITAL
     Dosage: 75 MILLIGRAM, QD (THEN REDUCED TO 75MG/DAY)
     Route: 065
  61. PHENOBARBITAL [Suspect]
     Active Substance: PHENOBARBITAL
     Dosage: 100 MILLIGRAM, QD; FURTHER TREATMENT CONTINUED AT 100MG/DAY
  62. PHENOBARBITAL [Suspect]
     Active Substance: PHENOBARBITAL
     Dosage: 100 MILLIGRAM, QD; FURTHER TREATMENT CONTINUED AT 100MG/DAY
  63. PHENOBARBITAL [Suspect]
     Active Substance: PHENOBARBITAL
     Dosage: 100 MILLIGRAM, QD; FURTHER TREATMENT CONTINUED AT 100MG/DAY
     Route: 065
  64. PHENOBARBITAL [Suspect]
     Active Substance: PHENOBARBITAL
     Dosage: 100 MILLIGRAM, QD; FURTHER TREATMENT CONTINUED AT 100MG/DAY
     Route: 065
  65. CENOBAMATE [Suspect]
     Active Substance: CENOBAMATE
     Indication: Partial seizures
     Dosage: 100 MILLIGRAM, QD
     Route: 065
  66. CENOBAMATE [Suspect]
     Active Substance: CENOBAMATE
     Indication: Rasmussen encephalitis
     Dosage: 100 MILLIGRAM, QD
  67. CENOBAMATE [Suspect]
     Active Substance: CENOBAMATE
     Dosage: 100 MILLIGRAM, QD
  68. CENOBAMATE [Suspect]
     Active Substance: CENOBAMATE
     Dosage: 100 MILLIGRAM, QD
     Route: 065
  69. CENOBAMATE [Suspect]
     Active Substance: CENOBAMATE
     Dosage: 300 MILLIGRAM, QD
     Route: 065
  70. CENOBAMATE [Suspect]
     Active Substance: CENOBAMATE
     Dosage: 300 MILLIGRAM, QD
  71. CENOBAMATE [Suspect]
     Active Substance: CENOBAMATE
     Dosage: 300 MILLIGRAM, QD
  72. CENOBAMATE [Suspect]
     Active Substance: CENOBAMATE
     Dosage: 300 MILLIGRAM, QD
     Route: 065
  73. CENOBAMATE [Suspect]
     Active Substance: CENOBAMATE
     Dosage: 200 MILLIGRAM, QD
     Route: 065
  74. CENOBAMATE [Suspect]
     Active Substance: CENOBAMATE
     Dosage: 200 MILLIGRAM, QD
     Route: 065
  75. CENOBAMATE [Suspect]
     Active Substance: CENOBAMATE
     Dosage: 200 MILLIGRAM, QD
  76. CENOBAMATE [Suspect]
     Active Substance: CENOBAMATE
     Dosage: 200 MILLIGRAM, QD

REACTIONS (8)
  - Drug ineffective [Unknown]
  - Pancreatitis [Unknown]
  - Aphasia [Unknown]
  - Sedation [Unknown]
  - Vision blurred [Unknown]
  - Diplopia [Unknown]
  - Ataxia [Unknown]
  - Dysarthria [Unknown]
